FAERS Safety Report 7907057-1 (Version None)
Quarter: 2011Q4

REPORT INFORMATION
  Report Type: 
  Country: None (occurrence: None)
  Receive Date: 20111110
  Receipt Date: 20111031
  Transmission Date: 20120403
  Serious: Yes (Other)
  Sender: FDA-Public Use
  Company Number: NL-PERRIGO-11NL009458

PATIENT
  Age: 2 Year
  Sex: Male

DRUGS (2)
  1. PREDNISOLONE SODIUM PHOSPHATE [Suspect]
     Indication: ACUTE LYMPHOCYTIC LEUKAEMIA
     Dosage: 60 MG/M2, QD
     Route: 065
  2. PREDNISOLONE SODIUM PHOSPHATE [Suspect]
     Dosage: UNK, GRADUALLY TAPERED
     Route: 065

REACTIONS (3)
  - ADRENAL INSUFFICIENCY [None]
  - TREMOR [None]
  - HYPOGLYCAEMIA [None]
